FAERS Safety Report 5928740-3 (Version None)
Quarter: 2008Q4

REPORT INFORMATION
  Report Type: 
  Country: None (occurrence: None)
  Receive Date: 20081023
  Receipt Date: 20081014
  Transmission Date: 20090506
  Serious: Yes (Hospitalization)
  Sender: FDA-Public Use
  Company Number: ES-MERCK-0810ESP00012

PATIENT
  Age: 55 Year
  Sex: Male
  Weight: 65 kg

DRUGS (7)
  1. ZETIA [Suspect]
     Indication: TYPE IIA HYPERLIPIDAEMIA
     Route: 048
     Dates: start: 20040520
  2. ATORVASTATIN CALCIUM [Concomitant]
     Indication: TYPE IIA HYPERLIPIDAEMIA
     Route: 048
     Dates: start: 19991027
  3. AZATHIOPRINE [Suspect]
     Indication: HEART TRANSPLANT
     Route: 048
     Dates: start: 19980911
  4. TACROLIMUS [Suspect]
     Indication: HEART TRANSPLANT
     Route: 048
     Dates: start: 19980911
  5. PREDNISONE [Concomitant]
     Indication: HEART TRANSPLANT
     Route: 048
     Dates: start: 19980911
  6. LOSARTAN POTASSIUM [Concomitant]
     Indication: HYPERTENSION
     Route: 048
     Dates: start: 19980911
  7. AMLODIPINE [Concomitant]
     Indication: HYPERTENSION
     Route: 048
     Dates: start: 19980911

REACTIONS (1)
  - SQUAMOUS CELL CARCINOMA [None]
